FAERS Safety Report 6089697-0 (Version None)
Quarter: 2009Q1

REPORT INFORMATION
  Report Type: 
  Country: None (occurrence: None)
  Receive Date: 20090224
  Receipt Date: 20090220
  Transmission Date: 20090719
  Serious: Yes (Hospitalization, Disabling, Other)
  Sender: FDA-Public Use
  Company Number: US-B.I. PHARMACEUTICALS,INC./RIDGEFIELD-2009-BP-01537BP

PATIENT
  Sex: Male
  Weight: 96 kg

DRUGS (10)
  1. AGGRENOX [Suspect]
     Indication: TRANSIENT ISCHAEMIC ATTACK
     Dates: start: 20080902
  2. AMBIEN [Concomitant]
  3. NEXIUM [Concomitant]
  4. NIASPAN [Concomitant]
  5. LIPITOR [Concomitant]
  6. DIOVAN [Concomitant]
  7. FERROUS SULFATE TAB [Concomitant]
  8. NORVASC [Concomitant]
  9. PHENYTOIN [Concomitant]
  10. LISINOPRIL [Concomitant]

REACTIONS (1)
  - TRANSIENT ISCHAEMIC ATTACK [None]
